FAERS Safety Report 6593283-3 (Version None)
Quarter: 2010Q1

REPORT INFORMATION
  Report Type: 
  Country: None (occurrence: None)
  Receive Date: 20100222
  Receipt Date: 20081223
  Transmission Date: 20100710
  Serious: No
  Sender: FDA-Public Use
  Company Number: US-BRISTOL-MYERS SQUIBB COMPANY-14393524

PATIENT
  Age: 42 Year
  Sex: Female
  Weight: 67 kg

DRUGS (6)
  1. ORENCIA [Suspect]
     Indication: RHEUMATOID ARTHRITIS
     Route: 042
     Dates: start: 20070212
  2. METHOTREXATE [Concomitant]
  3. CELEBREX [Concomitant]
  4. ALLEGRA D 24 HOUR [Concomitant]
  5. FOLIC ACID [Concomitant]
  6. BYSTOLIC [Concomitant]

REACTIONS (3)
  - BREAST CYST [None]
  - OVARIAN CYST [None]
  - RENAL CYST [None]
